FAERS Safety Report 24709876 (Version 2)
Quarter: 2024Q4

REPORT INFORMATION
  Report Type: Spontaneous
  Country: US (occurrence: US)
  Receive Date: 20241209
  Receipt Date: 20241226
  Transmission Date: 20250114
  Serious: No
  Sender: BIONPHARMA INC.
  Company Number: US-Bion-014472

PATIENT
  Sex: Male

DRUGS (1)
  1. NAPROXEN SODIUM [Suspect]
     Active Substance: NAPROXEN SODIUM
     Indication: Arthralgia
     Dates: end: 20241203

REACTIONS (1)
  - Poor quality product administered [Unknown]
